FAERS Safety Report 17578105 (Version 2)
Quarter: 2020Q2

REPORT INFORMATION
  Report Type: Spontaneous
  Country: US (occurrence: US)
  Receive Date: 20200324
  Receipt Date: 20200501
  Transmission Date: 20200713
  Serious: Yes (Death, Hospitalization, Other)
  Sender: FDA-Public Use
  Company Number: US-TASMAN PHARMA, INC.-2020TSM00157

PATIENT
  Age: 35 Year
  Sex: Male
  Weight: 90.02 kg

DRUGS (15)
  1. CLOZAPINE. [Suspect]
     Active Substance: CLOZAPINE
     Indication: SCHIZOPHRENIA
     Dosage: 500 MG, 1X/DAY AT BEDTIME
     Route: 048
  2. DIPHENHYDRAMINE. [Concomitant]
     Active Substance: DIPHENHYDRAMINE
     Dosage: 50 MG, 6X/DAY AS NEEDED
     Route: 048
  3. DIPHENHYDRAMINE. [Concomitant]
     Active Substance: DIPHENHYDRAMINE
     Dosage: 50 MG, 6X/DAY AS NEEDED
     Route: 030
  4. CHLORPROMAZINE. [Concomitant]
     Active Substance: CHLORPROMAZINE
     Dosage: 200 MG, 1X/DAY IN THE MORNING
     Route: 048
  5. BENZTROPINE. [Concomitant]
     Active Substance: BENZTROPINE
     Dosage: 1 MG, 2X/DAY
     Route: 048
  6. HALOPERIDOL. [Concomitant]
     Active Substance: HALOPERIDOL
     Dosage: 15 MG, 2X/DAY
     Route: 048
  7. HALOPERIDOL. [Concomitant]
     Active Substance: HALOPERIDOL
     Dosage: 10 MG, 6X/DAY AS NEEDED
     Route: 030
  8. POLYETHYLENE GLYCOL [Concomitant]
     Active Substance: POLYETHYLENE GLYCOLS
     Dosage: 17 G IN WATER, 1X/DAY IN THE MORNING
     Route: 048
  9. LORAZEPAM. [Concomitant]
     Active Substance: LORAZEPAM
     Dosage: 2 MG, 6X/DAY AS NEEDED
     Route: 030
  10. LORAZEPAM. [Concomitant]
     Active Substance: LORAZEPAM
     Dosage: 2 MG, 6X/DAY AS NEEDED
     Route: 048
  11. DOCUSATE [Concomitant]
     Active Substance: DOCUSATE
     Dosage: 250 MG, 1X/DAY IN THE MORNING
     Route: 048
  12. LACTULOSE. [Concomitant]
     Active Substance: LACTULOSE
     Dosage: 30 ML, 2X/DAY AS NEEDED
     Route: 048
  13. DIVALOPREX SODIUM [Concomitant]
     Dosage: 1000 MG, 2X/DAY
     Route: 048
  14. HALOPERIDOL. [Concomitant]
     Active Substance: HALOPERIDOL
     Dosage: 10 MG, 6X/DAY AS NEEDED
     Route: 048
  15. MAGNESIUM CITRATE. [Concomitant]
     Active Substance: MAGNESIUM CITRATE
     Dosage: 300 ML, AS NEEDED
     Route: 048

REACTIONS (4)
  - Sepsis [Fatal]
  - Intestinal ischaemia [Fatal]
  - Schizophrenia [Not Recovered/Not Resolved]
  - Constipation [Unknown]

NARRATIVE: CASE EVENT DATE: 202001
